FAERS Safety Report 14990857 (Version 1)
Quarter: 2018Q2

REPORT INFORMATION
  Report Type: Spontaneous
  Country: SG (occurrence: SG)
  Receive Date: 20180608
  Receipt Date: 20180608
  Transmission Date: 20180711
  Serious: Yes (Hospitalization, Other)
  Sender: FDA-Public Use
  Company Number: SG-MYLANLABS-2018M1038320

PATIENT
  Age: 6 Decade
  Sex: Male

DRUGS (4)
  1. AZATHIOPRINE. [Suspect]
     Active Substance: AZATHIOPRINE
     Indication: CHRONIC HEPATITIS B
     Route: 065
     Dates: start: 2012
  2. METHYLPREDNISOLONE. [Suspect]
     Active Substance: METHYLPREDNISOLONE
     Indication: LIMBIC ENCEPHALITIS
     Route: 042
  3. MYCOPHENOLATE MOFETIL. [Suspect]
     Active Substance: MYCOPHENOLATE MOFETIL
     Indication: LIMBIC ENCEPHALITIS
     Route: 065
  4. ENTECAVIR. [Concomitant]
     Active Substance: ENTECAVIR
     Indication: ANTIVIRAL PROPHYLAXIS
     Route: 065
     Dates: start: 2014

REACTIONS (19)
  - Consciousness fluctuating [Recovering/Resolving]
  - Hallucination, visual [Recovering/Resolving]
  - Stupor [Recovering/Resolving]
  - Parkinsonism [Not Recovered/Not Resolved]
  - Hallucination, auditory [Recovering/Resolving]
  - Hyperhidrosis [Recovering/Resolving]
  - Hyperbilirubinaemia [Unknown]
  - Metal poisoning [Recovering/Resolving]
  - Dystonia [Recovering/Resolving]
  - Cognitive disorder [Not Recovered/Not Resolved]
  - Dysphagia [Recovering/Resolving]
  - Electroencephalogram abnormal [Recovering/Resolving]
  - Psychotic disorder [Recovering/Resolving]
  - Dementia [Not Recovered/Not Resolved]
  - Confusional state [Recovering/Resolving]
  - Condition aggravated [Recovering/Resolving]
  - Delusion [Recovering/Resolving]
  - Hypertonia [Recovering/Resolving]
  - Hepatic function abnormal [Recovered/Resolved]
